FAERS Safety Report 4795693-3 (Version None)
Quarter: 2005Q4

REPORT INFORMATION
  Report Type: 
  Country: None (occurrence: None)
  Receive Date: 20051012
  Receipt Date: 20051006
  Transmission Date: 20060501
  Serious: Yes (Disabling)
  Sender: FDA-Public Use
  Company Number: PHEH2005US11221

PATIENT
  Sex: Female

DRUGS (2)
  1. PAMIDRONATE DISODIUM [Suspect]
     Dosage: 90 MG, QMO
  2. ZOMETA [Suspect]
     Dosage: 4 MG, QMO

REACTIONS (1)
  - OSTEONECROSIS [None]
